FAERS Safety Report 9721838 (Version 1)
Quarter: 2013Q4

REPORT INFORMATION
  Report Type: Spontaneous
  Country: US (occurrence: US)
  Receive Date: 20131201
  Receipt Date: 20131201
  Transmission Date: 20140711
  Serious: No
  Sender: FDA-Public Use
  Company Number: US-ABBVIE-13P-163-1148502-00

PATIENT
  Age: 61 Year
  Sex: Male
  Weight: 81.72 kg

DRUGS (7)
  1. ANDROGEL [Suspect]
     Indication: BLOOD TESTOSTERONE DECREASED
     Route: 061
     Dates: start: 201303
  2. LISINOPRIL AND HYDROCHLOROTHIAZIDE [Concomitant]
     Indication: HYPERTENSION
     Dates: start: 2013, end: 2013
  3. LEXAPRO [Concomitant]
     Indication: ANXIETY
     Dosage: TAKES 5-10 MG, AT SLEEP
  4. METOPROLOL [Concomitant]
     Indication: HEART RATE INCREASED
     Dates: start: 2013, end: 2013
  5. SPARK [Concomitant]
     Indication: ENERGY INCREASED
     Dosage: 220 MG CAFFIENE, AM
  6. PROPECIA [Concomitant]
     Indication: ALOPECIA
  7. NEXIUM [Concomitant]
     Indication: DYSPEPSIA
     Route: 048

REACTIONS (4)
  - Heart rate increased [Not Recovered/Not Resolved]
  - Hypertension [Not Recovered/Not Resolved]
  - Blood testosterone increased [Not Recovered/Not Resolved]
  - Wrong patient received medication [Not Recovered/Not Resolved]
